FAERS Safety Report 10068685 (Version 1)
Quarter: 2014Q2

REPORT INFORMATION
  Report Type: Spontaneous
  Country: US (occurrence: US)
  Receive Date: 20140409
  Receipt Date: 20140409
  Transmission Date: 20141212
  Serious: Yes (Disabling, Other)
  Sender: FDA-Public Use
  Company Number: US-ASTRAZENECA-2014SE23007

PATIENT
  Age: 63 Year
  Sex: Male

DRUGS (4)
  1. GOSERELIN [Suspect]
     Indication: PROSTATE CANCER METASTATIC
     Route: 058
     Dates: start: 200907
  2. ASPIRIN [Concomitant]
     Route: 065
  3. HYDROCHLOROTHIAZIDE [Concomitant]
     Route: 065
  4. SIMVASTATIN [Concomitant]
     Route: 065

REACTIONS (5)
  - Depression [Recovering/Resolving]
  - Suicidal ideation [Unknown]
  - Hot flush [Unknown]
  - Loss of libido [Unknown]
  - Weight decreased [Unknown]
